FAERS Safety Report 6345094-1 (Version None)
Quarter: 2009Q3

REPORT INFORMATION
  Report Type: 
  Country: None (occurrence: None)
  Receive Date: 20090909
  Receipt Date: 20070328
  Transmission Date: 20100115
  Serious: Yes (Other)
  Sender: FDA-Public Use
  Company Number: US-ASTRAZENECA-2006UW03013

PATIENT
  Age: 31 Year
  Sex: Female
  Weight: 137.9 kg

DRUGS (13)
  1. SEROQUEL [Suspect]
     Indication: ANXIETY
     Route: 048
     Dates: start: 20000101, end: 20050101
  2. SEROQUEL [Suspect]
     Indication: DEPRESSION
     Route: 048
     Dates: start: 20000101, end: 20050101
  3. SEROQUEL [Suspect]
     Indication: BIPOLAR DISORDER
     Route: 048
     Dates: start: 20000101, end: 20050101
  4. SEROQUEL [Suspect]
     Dosage: 200 - 800 MG, AT NIGHT
     Route: 048
     Dates: start: 20030101
  5. SEROQUEL [Suspect]
     Dosage: 200 - 800 MG, AT NIGHT
     Route: 048
     Dates: start: 20030101
  6. SEROQUEL [Suspect]
     Dosage: 200 - 800 MG, AT NIGHT
     Route: 048
     Dates: start: 20030101
  7. RISPERDAL [Concomitant]
     Dates: start: 20000101, end: 20030101
  8. DILANTIN [Concomitant]
     Dosage: 100 - 300 MG
     Route: 048
     Dates: start: 20040106
  9. BENICAR [Concomitant]
     Indication: HYPERTENSION
     Dates: start: 20060113
  10. VYTORIN [Concomitant]
     Indication: HYPERLIPIDAEMIA
     Dates: start: 20060113
  11. LORTAB [Concomitant]
     Dosage: 10/500 MG, ONE TABLET 3-4 TIMES A DAY
     Route: 048
     Dates: start: 20040122
  12. LITHIUM CARBONATE [Concomitant]
     Dosage: 450 - 900 MG AT BEDTIME
     Dates: start: 20040106
  13. ELAVIL [Concomitant]
     Dosage: 200 - 400 MG, DAILY AT BEDTIME
     Dates: start: 20040109

REACTIONS (5)
  - DIABETES MELLITUS [None]
  - DIABETES MELLITUS INADEQUATE CONTROL [None]
  - NEUROPATHY PERIPHERAL [None]
  - TYPE 1 DIABETES MELLITUS [None]
  - WEIGHT INCREASED [None]
